FAERS Safety Report 17895385 (Version 1)
Quarter: 2020Q2

REPORT INFORMATION
  Report Type: Spontaneous
  Country: GB (occurrence: GB)
  Receive Date: 20200615
  Receipt Date: 20200615
  Transmission Date: 20200714
  Serious: Yes (Hospitalization)
  Sender: FDA-Public Use
  Company Number: GB-ROCHE-2619786

PATIENT
  Age: 69 Year
  Sex: Female

DRUGS (12)
  1. PREDNISOLONE. [Concomitant]
     Active Substance: PREDNISOLONE
  2. OMEPRAZOLE. [Concomitant]
     Active Substance: OMEPRAZOLE
  3. IBUPROFEN SODIUM. [Concomitant]
     Active Substance: IBUPROFEN SODIUM
  4. FOSTAIR [Concomitant]
     Active Substance: BECLOMETHASONE\FORMOTEROL
  5. PARACETAMOL [Concomitant]
     Active Substance: ACETAMINOPHEN
  6. ADCAL D3 [Concomitant]
     Active Substance: CALCIUM CARBONATE\CHOLECALCIFEROL
  7. TOCILIZUMAB. [Suspect]
     Active Substance: TOCILIZUMAB
     Indication: RHEUMATOID ARTHRITIS
     Route: 058
     Dates: start: 20200224, end: 20200507
  8. HYPROMELLOSE [Concomitant]
     Active Substance: HYPROMELLOSES
  9. DENOSUMAB [Concomitant]
     Active Substance: DENOSUMAB
  10. PRAVASTATIN. [Concomitant]
     Active Substance: PRAVASTATIN
  11. FUROSEMIDE. [Concomitant]
     Active Substance: FUROSEMIDE
  12. LOSARTAN. [Concomitant]
     Active Substance: LOSARTAN

REACTIONS (2)
  - Asthma [Not Recovered/Not Resolved]
  - Infection [Unknown]
